FAERS Safety Report 7347715-3 (Version None)
Quarter: 2011Q1

REPORT INFORMATION
  Report Type: 
  Country: None (occurrence: None)
  Receive Date: 20110311
  Receipt Date: 20110303
  Transmission Date: 20110831
  Serious: Yes (Death)
  Sender: FDA-Public Use
  Company Number: B0704390A

PATIENT
  Sex: Male
  Weight: 44 kg

DRUGS (2)
  1. SERETIDE [Suspect]
     Indication: EMPHYSEMA
     Dosage: 500MCG PER DAY
     Route: 055
     Dates: start: 20091130, end: 20100419
  2. SPIRIVA [Suspect]
     Dosage: 18MCG PER DAY
     Route: 055
     Dates: start: 20091214, end: 20100419

REACTIONS (2)
  - ILEUS [None]
  - SMALL INTESTINAL PERFORATION [None]
